FAERS Safety Report 15807300 (Version 2)
Quarter: 2019Q1

REPORT INFORMATION
  Report Type: Spontaneous
  Country: US (occurrence: US)
  Receive Date: 20190110
  Receipt Date: 20190130
  Transmission Date: 20190417
  Serious: No
  Sender: FDA-Public Use
  Company Number: US-009507513-1901USA001854

PATIENT
  Sex: Male

DRUGS (1)
  1. PROVENTIL [Suspect]
     Active Substance: ALBUTEROL
     Dosage: UNK
     Dates: start: 201812

REACTIONS (8)
  - Product quality issue [Unknown]
  - Physical product label issue [Unknown]
  - Underdose [Unknown]
  - Poor quality device used [Unknown]
  - Malaise [Unknown]
  - Product lot number issue [Unknown]
  - Product expiration date issue [Unknown]
  - Adverse event [Unknown]

NARRATIVE: CASE EVENT DATE: 201812
